FAERS Safety Report 19506233 (Version 1)
Quarter: 2021Q3

REPORT INFORMATION
  Report Type: Report from Study
  Country: US (occurrence: US)
  Receive Date: 20210708
  Receipt Date: 20210708
  Transmission Date: 20211014
  Serious: Yes (Death)
  Sender: FDA-Public Use
  Company Number: US-TAIHO ONCOLOGY  INC-EU-2021-01232

PATIENT
  Age: 77 Year
  Sex: Male
  Weight: 89.71 kg

DRUGS (1)
  1. LONSURF [Suspect]
     Active Substance: TIPIRACIL HYDROCHLORIDE\TRIFLURIDINE
     Indication: COLON CANCER
     Dosage: CURRENT CYCLE UNKNOWN
     Route: 048
     Dates: start: 20210405

REACTIONS (3)
  - Diarrhoea [Unknown]
  - Myocardial infarction [Fatal]
  - Thirst [Unknown]

NARRATIVE: CASE EVENT DATE: 20210502
